FAERS Safety Report 7020976-6 (Version None)
Quarter: 2010Q3

REPORT INFORMATION
  Report Type: 
  Country: None (occurrence: None)
  Receive Date: 20100929
  Receipt Date: 20100922
  Transmission Date: 20110219
  Serious: Yes (Other)
  Sender: FDA-Public Use
  Company Number: US-AMGEN-KDL440275

PATIENT
  Sex: Female

DRUGS (3)
  1. PROLIA [Suspect]
     Indication: OSTEOPOROSIS POSTMENOPAUSAL
     Dates: start: 20100701
  2. TOPROL-XL [Concomitant]
  3. COUMADIN [Concomitant]

REACTIONS (16)
  - ACTIVITIES OF DAILY LIVING IMPAIRED [None]
  - ANTICOAGULATION DRUG LEVEL ABOVE THERAPEUTIC [None]
  - ASTHENIA [None]
  - BACK PAIN [None]
  - CYSTITIS [None]
  - DECREASED APPETITE [None]
  - DRY SKIN [None]
  - FEELING OF BODY TEMPERATURE CHANGE [None]
  - HYPERSENSITIVITY [None]
  - MALAISE [None]
  - MENTAL IMPAIRMENT [None]
  - NAUSEA [None]
  - PAIN IN EXTREMITY [None]
  - SKIN DISCOLOURATION [None]
  - SKIN WRINKLING [None]
  - WEIGHT DECREASED [None]
